FAERS Safety Report 15505836 (Version 8)
Quarter: 2019Q1

REPORT INFORMATION
  Report Type: Spontaneous
  Country: US (occurrence: US)
  Receive Date: 20181016
  Receipt Date: 20190320
  Transmission Date: 20190417
  Serious: Yes (Other)
  Sender: FDA-Public Use
  Company Number: US-PFIZER INC-2018403029

PATIENT
  Age: 64 Year
  Sex: Female
  Weight: 56 kg

DRUGS (4)
  1. IBRANCE [Suspect]
     Active Substance: PALBOCICLIB
     Dosage: 100 MG, CYCLIC (DAILY 21 DAYS ON AND 7 DAYS OFF)
     Route: 048
     Dates: start: 20181112
  2. ARIMIDEX [Suspect]
     Active Substance: ANASTROZOLE
     Dosage: UNK, DAILY
  3. IBRANCE [Suspect]
     Active Substance: PALBOCICLIB
     Indication: BREAST CANCER FEMALE
     Dosage: 125 MG, CYCLIC (21 DAYS ON AND 7 DAYS OFF)
     Route: 048
     Dates: start: 20180921, end: 20181005
  4. IBRANCE [Suspect]
     Active Substance: PALBOCICLIB
     Dosage: 75 MG, CYCLIC (DAILY 21 DAYS ON AND 7 DAYS OFF)
     Route: 048
     Dates: start: 20181210

REACTIONS (21)
  - Discomfort [Unknown]
  - Constipation [Unknown]
  - Upper respiratory tract infection [Recovered/Resolved]
  - Hiccups [Unknown]
  - Abdominal distension [Unknown]
  - Rhinorrhoea [Unknown]
  - Anaemia [Unknown]
  - Fatigue [Unknown]
  - Contusion [Unknown]
  - Dyspepsia [Unknown]
  - Asthenia [Unknown]
  - Bone marrow failure [Recovering/Resolving]
  - Diarrhoea [Unknown]
  - Bowel movement irregularity [Unknown]
  - Productive cough [Unknown]
  - Nasal congestion [Unknown]
  - Leukopenia [Recovering/Resolving]
  - Thrombocytopenia [Unknown]
  - Hot flush [Not Recovered/Not Resolved]
  - Sinusitis [Recovered/Resolved]
  - Dyspnoea exertional [Unknown]

NARRATIVE: CASE EVENT DATE: 2018
